FAERS Safety Report 15283548 (Version 1)
Quarter: 2018Q3

REPORT INFORMATION
  Report Type: Spontaneous
  Country: US (occurrence: US)
  Receive Date: 20180731
  Receipt Date: 20180731
  Transmission Date: 20181010
  Serious: No
  Sender: FDA-Public Use
  Company Number: None

PATIENT
  Age: 28 Year
  Sex: Female

DRUGS (1)
  1. PROGESTERONE IN ETHYL OLEATE 50MG/ML CVS [Suspect]
     Active Substance: PROGESTERONE
     Indication: PREGNANCY
     Route: 030
     Dates: start: 20180713, end: 20180724

REACTIONS (2)
  - Pruritus [None]
  - Injection site warmth [None]

NARRATIVE: CASE EVENT DATE: 20180724
